FAERS Safety Report 19154360 (Version 1)
Quarter: 2021Q2

REPORT INFORMATION
  Report Type: Spontaneous
  Country: JP (occurrence: JP)
  Receive Date: 20210419
  Receipt Date: 20210419
  Transmission Date: 20210717
  Serious: Yes (Other)
  Sender: FDA-Public Use
  Company Number: JP-AZURITY PHARMACEUTICALS, INC.-2021AZY00036

PATIENT
  Age: 76 Year
  Sex: Male

DRUGS (4)
  1. SALAZOSULFAPYRIDINE [Concomitant]
     Active Substance: SULFASALAZINE
     Dosage: 1000 MG, 1X/DAY
     Route: 065
  2. METHOTREXATE. [Suspect]
     Active Substance: METHOTREXATE
     Indication: RHEUMATOID ARTHRITIS
     Dosage: 10 MG, 1X/WEEK
     Route: 065
  3. FOLATE [Concomitant]
     Active Substance: FOLATE SODIUM
     Dosage: 10 MG, 1X/WEEK
     Route: 065
  4. IGURATIMOD [Concomitant]
     Active Substance: IGURATIMOD
     Dosage: 50 MG, 1X/DAY
     Route: 065

REACTIONS (2)
  - Osteolysis [Recovered/Resolved]
  - Lymphoproliferative disorder [Recovered/Resolved]
